FAERS Safety Report 12523098 (Version 2)
Quarter: 2016Q3

REPORT INFORMATION
  Report Type: Report from Study
  Country: DE (occurrence: DE)
  Receive Date: 20160701
  Receipt Date: 20160707
  Transmission Date: 20161109
  Serious: Yes (Other)
  Sender: FDA-Public Use
  Company Number: PHHY2016DE090677

PATIENT
  Sex: Female
  Weight: 65 kg

DRUGS (8)
  1. HYDROCORTISONE. [Concomitant]
     Active Substance: HYDROCORTISONE
     Indication: ADRENAL INSUFFICIENCY
     Dosage: 10 MG, BID
     Route: 048
     Dates: start: 201107
  2. PROTHYRID [Concomitant]
     Active Substance: LEVOTHYROXINE SODIUM
     Indication: HYPOTHYROIDISM
     Dosage: 50 UG, QD
     Route: 048
     Dates: start: 1976
  3. LERCANIDIPINE [Concomitant]
     Active Substance: LERCANIDIPINE
     Indication: ESSENTIAL HYPERTENSION
     Dosage: 5 MG, QD
     Route: 048
     Dates: start: 20160501
  4. HCT [Concomitant]
     Active Substance: HYDROCHLOROTHIAZIDE
     Indication: ESSENTIAL HYPERTENSION
     Dosage: 25 MG, QD
     Route: 048
     Dates: start: 201601
  5. PANTOZOL [Concomitant]
     Active Substance: PANTOPRAZOLE SODIUM
     Indication: PRODUCT USED FOR UNKNOWN INDICATION
     Dosage: 40 MG, QD
     Route: 048
     Dates: start: 201107
  6. HYDROCORTISONE. [Concomitant]
     Active Substance: HYDROCORTISONE
     Dosage: 10 MG, TID
     Route: 048
     Dates: start: 20160530
  7. VOTRIENT [Suspect]
     Active Substance: PAZOPANIB HYDROCHLORIDE
     Indication: RENAL CELL CARCINOMA
     Dosage: 400 MG, UNK
     Route: 048
     Dates: start: 20160415
  8. PIRACETAM ^RATIOPHARM^ [Concomitant]
     Indication: PRESBYACUSIS
     Dosage: 800 MG, QD
     Route: 048
     Dates: start: 2014

REACTIONS (4)
  - Hyponatraemia [Not Recovered/Not Resolved]
  - Thrombocytopenia [Not Recovered/Not Resolved]
  - Hypertension [Not Recovered/Not Resolved]
  - Transaminases increased [Not Recovered/Not Resolved]

NARRATIVE: CASE EVENT DATE: 20160512
